FAERS Safety Report 5721094-7 (Version None)
Quarter: 2008Q2

REPORT INFORMATION
  Report Type: 
  Country: None (occurrence: None)
  Receive Date: 20080424
  Receipt Date: 20080409
  Transmission Date: 20081010
  Serious: Yes (Other)
  Sender: FDA-Public Use
  Company Number: 220001M08FRA

PATIENT
  Age: 9 Year
  Sex: Male

DRUGS (2)
  1. SAIZEN [Suspect]
     Dosage: 1.2 MG, 1 IN 1 WEEKS
     Dates: start: 20010101
  2. CUTACNYL (BENZOYLPEROXIDE) [Concomitant]

REACTIONS (1)
  - MELANOCYTIC NAEVUS [None]
